FAERS Safety Report 7885905-1 (Version None)
Quarter: 2011Q4

REPORT INFORMATION
  Report Type: 
  Country: None (occurrence: None)
  Receive Date: 20111102
  Receipt Date: 20110701
  Transmission Date: 20120403
  Serious: No
  Sender: FDA-Public Use
  Company Number: US-AMGEN-USASP2011033705

PATIENT
  Age: 49 Year
  Sex: Female

DRUGS (3)
  1. METHOTREXATE [Concomitant]
     Dosage: 1 MG, QWK
     Dates: start: 20100101
  2. ENBREL [Suspect]
     Indication: RHEUMATOID ARTHRITIS
     Dosage: 50 MG, QWK
     Dates: start: 20070601
  3. PREDNISONE [Concomitant]
     Dosage: UNK

REACTIONS (8)
  - NASOPHARYNGITIS [None]
  - RHEUMATOID ARTHRITIS [None]
  - MALAISE [None]
  - PYREXIA [None]
  - NAUSEA [None]
  - INJECTION SITE ERYTHEMA [None]
  - COUGH [None]
  - INJECTION SITE HAEMORRHAGE [None]
